FAERS Safety Report 16569736 (Version 1)
Quarter: 2019Q3

REPORT INFORMATION
  Report Type: Spontaneous
  Country: US (occurrence: US)
  Receive Date: 20190715
  Receipt Date: 20190715
  Transmission Date: 20191004
  Serious: No
  Sender: FDA-Public Use
  Company Number: US-NVP-000010

PATIENT
  Sex: Male

DRUGS (2)
  1. CELLEPT [Concomitant]
     Indication: PROPHYLAXIS AGAINST TRANSPLANT REJECTION
     Route: 065
  2. SIROLIMUS 1 MG/ML SOLUTION [Suspect]
     Active Substance: SIROLIMUS
     Indication: PROPHYLAXIS AGAINST TRANSPLANT REJECTION
     Dosage: 1 ML (1 MG TOTAL) BY MOUTH ONCE DAILY, NDC NUMBER: 66689034702
     Route: 048

REACTIONS (1)
  - Drug effective for unapproved indication [Unknown]
